FAERS Safety Report 10089987 (Version 4)
Quarter: 2014Q4

REPORT INFORMATION
  Report Type: Spontaneous
  Country: BR (occurrence: BR)
  Receive Date: 20140421
  Receipt Date: 20141010
  Transmission Date: 20150528
  Serious: Yes (Hospitalization, Other)
  Sender: FDA-Public Use
  Company Number: BR-ASTRAZENECA-2014SE24684

PATIENT
  Age: 51 Year
  Sex: Male
  Weight: 77 kg

DRUGS (10)
  1. DIOVAN HCT [Suspect]
     Active Substance: HYDROCHLOROTHIAZIDE\VALSARTAN
     Indication: HYPERTENSION
     Dosage: DAILY
     Route: 048
     Dates: start: 1998, end: 2011
  2. ASPIRINA PREVENT [Concomitant]
     Active Substance: ASPIRIN
     Dosage: MANY YEARS AGO
     Route: 048
  3. LOZEPREL [Suspect]
     Active Substance: OMEPRAZOLE
     Indication: GASTRITIS PROPHYLAXIS
     Dosage: OMEPRAZOLE, MANY YEARS AGO
     Route: 048
  4. ATACAND [Suspect]
     Active Substance: CANDESARTAN CILEXETIL
     Indication: HYPERTENSION
     Route: 048
     Dates: start: 2011, end: 20140403
  5. INSULIN [Concomitant]
     Active Substance: INSULIN NOS
     Indication: DIABETES MELLITUS
     Dosage: THREE TIMES A DAY
     Dates: start: 1998
  6. ANGIPRESS CD [Suspect]
     Active Substance: ATENOLOL\CHLORTHALIDONE
     Indication: HYPERTENSION
     Dosage: 50+25 MG DAILY
     Route: 048
     Dates: start: 2012
  7. LIPANON [Concomitant]
     Active Substance: FENOFIBRATE
     Indication: BLOOD TRIGLYCERIDES INCREASED
     Dates: start: 201403
  8. LOZEPREL [Suspect]
     Active Substance: OMEPRAZOLE
     Indication: GASTRITIS PROPHYLAXIS
     Dosage: DAILY
     Route: 048
  9. METFORMIN HYDROCHLORIDE (NON AZ PRODUCT) [Suspect]
     Active Substance: METFORMIN HYDROCHLORIDE
     Indication: DIABETES MELLITUS
     Route: 048
     Dates: start: 1998
  10. DIOVAN HCT [Suspect]
     Active Substance: HYDROCHLOROTHIAZIDE\VALSARTAN
     Indication: HYPERTENSION
     Dosage: 320/12.5MG DAILY
     Route: 048
     Dates: start: 20140404

REACTIONS (4)
  - Drug ineffective [Recovered/Resolved]
  - Blood triglycerides increased [Recovered/Resolved]
  - Hypertension [Recovered/Resolved]
  - Renal artery occlusion [Recovered/Resolved]

NARRATIVE: CASE EVENT DATE: 1998
